FAERS Safety Report 22000180 (Version 1)
Quarter: 2023Q1

REPORT INFORMATION
  Report Type: Spontaneous
  Country: FR (occurrence: FR)
  Receive Date: 20230216
  Receipt Date: 20230216
  Transmission Date: 20230418
  Serious: Yes (Other)
  Sender: FDA-Public Use
  Company Number: None

PATIENT
  Age: 45 Year
  Sex: Female
  Weight: 49 kg

DRUGS (6)
  1. MYLOTARG [Suspect]
     Active Substance: GEMTUZUMAB OZOGAMICIN
     Indication: Acute myeloid leukaemia
     Dosage: 5 MG, 1X/DAY
     Route: 042
     Dates: start: 20230130, end: 20230130
  2. ZONEGRAN [Suspect]
     Active Substance: ZONISAMIDE
     Indication: Epilepsy
     Dosage: 300 MG, 1X/DAY
     Route: 048
     Dates: end: 20230130
  3. FLUDARABINE PHOSPHATE [Suspect]
     Active Substance: FLUDARABINE PHOSPHATE
     Indication: Acute myeloid leukaemia
     Dosage: 50 MG, 1X/DAY
     Route: 042
     Dates: start: 20230128, end: 20230130
  4. FYCOMPA [Concomitant]
     Active Substance: PERAMPANEL
  5. TRILEPTAL [Concomitant]
     Active Substance: OXCARBAZEPINE
  6. CLOBAZAM [Concomitant]
     Active Substance: CLOBAZAM

REACTIONS (1)
  - Hyperthermia [Recovered/Resolved]

NARRATIVE: CASE EVENT DATE: 20230130
